FAERS Safety Report 23607262 (Version 1)
Quarter: 2024Q1

REPORT INFORMATION
  Report Type: Spontaneous
  Country: US (occurrence: US)
  Receive Date: 20240307
  Receipt Date: 20240307
  Transmission Date: 20240410
  Serious: Yes (Other)
  Sender: FDA-Public Use
  Company Number: US-FreseniusKabi-FK202403690

PATIENT
  Sex: Male

DRUGS (7)
  1. DOXORUBICIN [Suspect]
     Active Substance: DOXORUBICIN
     Indication: Hodgkin^s disease
  2. DACARBAZINE [Suspect]
     Active Substance: DACARBAZINE
     Indication: Hodgkin^s disease
  3. BRENTUXIMAB VEDOTIN [Suspect]
     Active Substance: BRENTUXIMAB VEDOTIN
     Indication: Hodgkin^s disease
  4. VINCRISTINE [Suspect]
     Active Substance: VINCRISTINE
     Indication: Hodgkin^s disease
  5. UNSPECIFIED INGREDIENT [Suspect]
     Active Substance: UNSPECIFIED INGREDIENT
     Indication: Hodgkin^s disease
  6. BRENTUXIMAB [Concomitant]
     Active Substance: BRENTUXIMAB
     Indication: Hodgkin^s disease
     Dosage: CYCLE 5 OF BRENTUXIMAB AND NIVOLUMAB
  7. NIVOLUMAB [Concomitant]
     Active Substance: NIVOLUMAB
     Indication: Hodgkin^s disease
     Dosage: CYCLE 5 OF BRENTUXIMAB AND NIVOLUMAB

REACTIONS (3)
  - Febrile neutropenia [Unknown]
  - Clostridium difficile colitis [Unknown]
  - Cellulitis [Unknown]
